FAERS Safety Report 9268859 (Version 1)
Quarter: 2013Q2

REPORT INFORMATION
  Report Type: Spontaneous
  Country: FR (occurrence: FR)
  Receive Date: 20130503
  Receipt Date: 20130503
  Transmission Date: 20140414
  Serious: Yes (Other)
  Sender: FDA-Public Use
  Company Number: FR-BRISTOL-MYERS SQUIBB COMPANY-17342833

PATIENT
  Age: 41 Year
  Sex: Female

DRUGS (5)
  1. ABILIFY [Suspect]
     Indication: DEPRESSION
     Dates: start: 20130101
  2. ABILIFY [Suspect]
     Indication: PSYCHOTIC DISORDER
     Dates: start: 20130101
  3. ABILIFY [Suspect]
     Indication: AFFECTIVE DISORDER
     Dates: start: 20130101
  4. ABILIFY [Suspect]
     Indication: MOOD SWINGS
     Dates: start: 20130101
  5. SEROPLEX [Concomitant]

REACTIONS (3)
  - Abortion induced [Unknown]
  - Pregnancy [Recovered/Resolved]
  - Drug ineffective [Unknown]
